FAERS Safety Report 24083985 (Version 1)
Quarter: 2024Q3

REPORT INFORMATION
  Report Type: Spontaneous
  Country: ES (occurrence: ES)
  Receive Date: 20240712
  Receipt Date: 20240712
  Transmission Date: 20241016
  Serious: No
  Sender: PIERRE FABRE MEDICAMENT
  Company Number: ES-PFM-2022-03916

PATIENT
  Age: 28 Year
  Sex: Female

DRUGS (3)
  1. PROPRANOLOL [Suspect]
     Active Substance: PROPRANOLOL HYDROCHLORIDE
     Indication: Thyroiditis subacute
     Dosage: 40 MG, EVERY  HOURS
     Route: 065
  2. PROPRANOLOL [Suspect]
     Active Substance: PROPRANOLOL HYDROCHLORIDE
     Indication: Off label use
  3. ASPIRIN [Suspect]
     Active Substance: ASPIRIN
     Indication: Thyroiditis subacute
     Dosage: 500 MG, EVERY 6 HOUR
     Route: 065

REACTIONS (3)
  - Product use in unapproved indication [Unknown]
  - Product use issue [Unknown]
  - Off label use [Unknown]
